FAERS Safety Report 12215783 (Version 1)
Quarter: 2016Q1

REPORT INFORMATION
  Report Type: Spontaneous
  Country: RS (occurrence: RS)
  Receive Date: 20160328
  Receipt Date: 20160328
  Transmission Date: 20160526
  Serious: Yes (Hospitalization)
  Sender: FDA-Public Use
  Company Number: RS-B.I. PHARMACEUTICALS,INC./RIDGEFIELD-2016-BI-17971RS

PATIENT
  Sex: Female

DRUGS (1)
  1. PRADAXA [Suspect]
     Active Substance: DABIGATRAN ETEXILATE MESYLATE
     Indication: ATRIAL FIBRILLATION
     Dosage: 300 MG
     Route: 048
     Dates: start: 20151101, end: 20160229

REACTIONS (1)
  - Atrial thrombosis [Unknown]
